FAERS Safety Report 14276772 (Version 1)
Quarter: 2017Q4

REPORT INFORMATION
  Report Type: Spontaneous
  Country: US (occurrence: US)
  Receive Date: 20171212
  Receipt Date: 20171212
  Transmission Date: 20180321
  Serious: Yes (Disabling, Other)
  Sender: FDA-Public Use
  Company Number: US-PFIZER INC-2017522084

PATIENT
  Age: 44 Year
  Sex: Female
  Weight: 74.39 kg

DRUGS (3)
  1. PROVENTIL [Concomitant]
     Active Substance: ALBUTEROL
     Indication: ASTHMA
     Dosage: 2 DF, AS NEEDED (2 PUFFS EVERY 6 HOURS AS NEEDED)
  2. DIFLUCAN [Concomitant]
     Active Substance: FLUCONAZOLE
     Dosage: UNK UNK, AS NEEDED
  3. DEPO-PROVERA [Suspect]
     Active Substance: MEDROXYPROGESTERONE ACETATE
     Indication: CONTRACEPTION
     Dosage: 150 MG, EVERY 3 MONTHS
     Route: 030
     Dates: start: 201708, end: 20171106

REACTIONS (6)
  - Dizziness [Recovering/Resolving]
  - Lymphocyte count increased [Unknown]
  - Vaginal haemorrhage [Not Recovered/Not Resolved]
  - Gallbladder disorder [Unknown]
  - Irritability [Not Recovered/Not Resolved]
  - Monocyte count increased [Unknown]

NARRATIVE: CASE EVENT DATE: 201709
